FAERS Safety Report 7803316-1 (Version None)
Quarter: 2011Q4

REPORT INFORMATION
  Report Type: 
  Country: None (occurrence: None)
  Receive Date: 20111007
  Receipt Date: 20110909
  Transmission Date: 20120403
  Serious: Yes (Hospitalization)
  Sender: FDA-Public Use
  Company Number: IT-BAYER-2011-078291

PATIENT
  Age: 88 Year
  Sex: Female

DRUGS (2)
  1. ASPIRIN [Suspect]
     Indication: ISCHAEMIC HEART DISEASE PROPHYLAXIS
     Dosage: 100 MG, QD
     Route: 048
     Dates: start: 20110201
  2. FRAXIPARINA [Suspect]
     Indication: FEMUR FRACTURE
     Dosage: UNK
     Route: 058
     Dates: start: 20110503, end: 20110517

REACTIONS (1)
  - EPISTAXIS [None]
